FAERS Safety Report 5280317-1 (Version None)
Quarter: 2007Q1

REPORT INFORMATION
  Report Type: 
  Country: None (occurrence: None)
  Receive Date: 20070329
  Receipt Date: 20070319
  Transmission Date: 20070707
  Serious: Yes (Death, Congenital Anomaly)
  Sender: FDA-Public Use
  Company Number: J200701235

PATIENT
  Sex: Male

DRUGS (3)
  1. AMOXICILLIN TRIHYDRATE [Suspect]
     Dates: start: 20060101
  2. TAKEPRON [Suspect]
     Dosage: 30MG TWICE PER DAY
     Dates: start: 20060101
  3. CLARITHROMYCIN [Suspect]
     Dates: start: 20060101

REACTIONS (4)
  - CONGENITAL GENITAL MALFORMATION MALE [None]
  - DRUG EXPOSURE DURING PREGNANCY [None]
  - INTRA-UTERINE DEATH [None]
  - STILLBIRTH [None]
